FAERS Safety Report 20086040 (Version 5)
Quarter: 2022Q2

REPORT INFORMATION
  Report Type: Report from Study
  Country: US (occurrence: US)
  Receive Date: 20211118
  Receipt Date: 20220406
  Transmission Date: 20220721
  Serious: No
  Sender: FDA-Public Use
  Company Number: US-NOVARTISTESTPH-NVSC2021US262157

PATIENT
  Sex: Female

DRUGS (2)
  1. COSENTYX [Suspect]
     Active Substance: SECUKINUMAB
     Indication: Product used for unknown indication
     Dosage: 150 MG, UNKNOWN
     Route: 058
  2. COSENTYX [Suspect]
     Active Substance: SECUKINUMAB
     Dosage: UNK
     Route: 065

REACTIONS (13)
  - Influenza like illness [Unknown]
  - Injection site pain [Unknown]
  - Pain [Unknown]
  - Dyspnoea [Unknown]
  - Headache [Unknown]
  - Mood altered [Unknown]
  - Crying [Unknown]
  - Depression [Unknown]
  - Fatigue [Unknown]
  - Hunger [Unknown]
  - Psoriasis [Unknown]
  - Scratch [Unknown]
  - Skin haemorrhage [Unknown]
